FAERS Safety Report 15169062 (Version 1)
Quarter: 2018Q3

REPORT INFORMATION
  Report Type: Report from Study
  Country: DE (occurrence: DE)
  Receive Date: 20180720
  Receipt Date: 20180720
  Transmission Date: 20181010
  Serious: Yes (Hospitalization)
  Sender: FDA-Public Use
  Company Number: DE-ROCHE-1955056

PATIENT
  Age: 67 Year
  Sex: Female

DRUGS (8)
  1. PANTOPRAZOL [Concomitant]
     Active Substance: PANTOPRAZOLE SODIUM
  2. TRIMIPRAMIN [Concomitant]
     Active Substance: TRIMIPRAMINE MALEATE
  3. RITUXIMAB. [Suspect]
     Active Substance: RITUXIMAB
     Indication: RHEUMATOID ARTHRITIS
     Dosage: LAST DOSE PRIOR TO SERIOUS ADVERSE EVENT WAS ON 31/MAY/2016.
     Route: 042
  4. AMITRIPTYLIN [Concomitant]
     Active Substance: AMITRIPTYLINE
  5. DICLOFENAC [Concomitant]
     Active Substance: DICLOFENAC
  6. PREDNISOLON [Concomitant]
     Active Substance: PREDNISOLONE
  7. HYDROXYCHLOROQUINE [Concomitant]
     Active Substance: HYDROXYCHLOROQUINE
     Indication: RHEUMATOID ARTHRITIS
     Route: 065
  8. METHOTREXAT [Suspect]
     Active Substance: METHOTREXATE
     Indication: RHEUMATOID ARTHRITIS
     Route: 065
     Dates: end: 201612

REACTIONS (3)
  - Acute interstitial pneumonitis [Not Recovered/Not Resolved]
  - Superinfection bacterial [Not Recovered/Not Resolved]
  - Pneumonitis [Unknown]

NARRATIVE: CASE EVENT DATE: 20161123
